FAERS Safety Report 5066010-9 (Version None)
Quarter: 2006Q3

REPORT INFORMATION
  Report Type: 
  Country: None (occurrence: None)
  Receive Date: 20060731
  Receipt Date: 20060731
  Transmission Date: 20061208
  Serious: Yes (Death)
  Sender: FDA-Public Use
  Company Number: None

PATIENT
  Age: 80 Year
  Sex: Female

DRUGS (7)
  1. LODINE [Suspect]
     Dosage: MG NOT PROVIDED DAILY
  2. PLAVIX [Suspect]
     Indication: ANGIOPATHY
     Dosage: 75 MG DAILY
  3. LEXAPRO [Concomitant]
  4. MICRONASE [Concomitant]
  5. LOPID [Concomitant]
  6. ARICEPT [Concomitant]
  7. DILANTIN [Concomitant]

REACTIONS (2)
  - HAEMORRHAGE INTRACRANIAL [None]
  - LOSS OF CONSCIOUSNESS [None]
